FAERS Safety Report 20814952 (Version 1)
Quarter: 2022Q2

REPORT INFORMATION
  Report Type: Spontaneous
  Country: US (occurrence: None)
  Receive Date: 20220511
  Receipt Date: 20220511
  Transmission Date: 20220721
  Serious: Yes (Hospitalization)
  Sender: FDA-Public Use
  Company Number: None

PATIENT
  Age: 4 Year
  Sex: Female

DRUGS (2)
  1. TACROLIMUS [Suspect]
     Active Substance: TACROLIMUS
     Indication: Pulmonary arterial hypertension
     Dosage: FREQUENCY : EVERY 12 HOURS;?OTHER ROUTE : G-TUBE;?
     Route: 050
     Dates: start: 20220113
  2. TACROLIMUS [Suspect]
     Active Substance: TACROLIMUS
     Indication: Heart transplant

REACTIONS (3)
  - Pyrexia [None]
  - Coronavirus infection [None]
  - Tonsillectomy [None]

NARRATIVE: CASE EVENT DATE: 20220426
